FAERS Safety Report 11704342 (Version 1)
Quarter: 2015Q4

REPORT INFORMATION
  Report Type: Report from Study
  Country: CH (occurrence: CH)
  Receive Date: 20151106
  Receipt Date: 20151106
  Transmission Date: 20160304
  Serious: Yes (Other)
  Sender: FDA-Public Use
  Company Number: CH-VIIV HEALTHCARE LIMITED-CH2015GSK158950

PATIENT
  Age: 52 Year
  Sex: Female

DRUGS (1)
  1. ABACAVIR SULFATE + LAMIVUDINE [Suspect]
     Active Substance: ABACAVIR SULFATE\LAMIVUDINE
     Indication: HIV INFECTION

REACTIONS (5)
  - Lipids increased [Unknown]
  - Cerebral toxoplasmosis [Unknown]
  - Drug interaction [Unknown]
  - Hepatitis C [Unknown]
  - Nephropathy toxic [Unknown]
